FAERS Safety Report 18530270 (Version 1)
Quarter: 2020Q4

REPORT INFORMATION
  Report Type: Spontaneous
  Country: DE (occurrence: NL)
  Receive Date: 20201120
  Receipt Date: 20201120
  Transmission Date: 20210114
  Serious: Yes (Hospitalization, Other)
  Sender: FDA-Public Use
  Company Number: NL-ELI_LILLY_AND_COMPANY-NL202011008699

PATIENT
  Age: 32 Year
  Sex: Female

DRUGS (5)
  1. ENCORAFENIB [Suspect]
     Active Substance: ENCORAFENIB
     Indication: COLORECTAL CANCER METASTATIC
     Dosage: 300 MG, DAILY
     Route: 048
     Dates: start: 20201002
  2. ERBITUX [Suspect]
     Active Substance: CETUXIMAB
     Indication: COLON CANCER METASTATIC
     Dosage: UNK UNK, UNKNOWN
     Route: 042
     Dates: start: 20201002
  3. ERBITUX [Suspect]
     Active Substance: CETUXIMAB
     Dosage: UNK, UNKNOWN
     Route: 042
     Dates: start: 20201008
  4. ENCORAFENIB [Suspect]
     Active Substance: ENCORAFENIB
     Dosage: 300 MG, DAILY
     Route: 048
     Dates: start: 20201008
  5. ERBITUX [Suspect]
     Active Substance: CETUXIMAB
     Dosage: 250 MG/M2, UNK
     Route: 042
     Dates: end: 20201005

REACTIONS (4)
  - Off label use [Unknown]
  - Vomiting [Recovered/Resolved]
  - Nausea [Recovered/Resolved]
  - Atrial fibrillation [Recovered/Resolved]

NARRATIVE: CASE EVENT DATE: 20201003
